APPROVED DRUG PRODUCT: ERYTHROMYCIN
Active Ingredient: ERYTHROMYCIN
Strength: 2%
Dosage Form/Route: GEL;TOPICAL
Application: A208154 | Product #001
Applicant: ENCUBE ETHICALS PRIVATE LTD
Approved: Jul 19, 2017 | RLD: No | RS: No | Type: DISCN